FAERS Safety Report 4758474-2 (Version None)
Quarter: 2005Q3

REPORT INFORMATION
  Report Type: 
  Country: None (occurrence: None)
  Receive Date: 20050830
  Receipt Date: 20050830
  Transmission Date: 20060218
  Serious: Yes (Disabling)
  Sender: FDA-Public Use
  Company Number: None

PATIENT
  Sex: Male
  Weight: 52.1637 kg

DRUGS (3)
  1. COPEGUS [Suspect]
     Indication: HEPATITIS C VIRUS
     Dosage: 200MG-AM-,   400MG -PM-   DAILY   PO
     Route: 048
     Dates: start: 20050621
  2. PEGASYS [Suspect]
     Indication: HEPATITIS C VIRUS
     Dosage: 180MG  WEEKLY   SQ
     Route: 058
     Dates: start: 20050621
  3. TRAZADONE [Concomitant]

REACTIONS (2)
  - PSORIASIS [None]
  - PSORIATIC ARTHROPATHY [None]
